FAERS Safety Report 9143612 (Version 4)
Quarter: 2016Q1

REPORT INFORMATION
  Report Type: Report from Study
  Country: CA (occurrence: CA)
  Receive Date: 20130306
  Receipt Date: 20160205
  Transmission Date: 20160526
  Serious: Yes (Hospitalization, Other)
  Sender: FDA-Public Use
  Company Number: CA-ROCHE-1198387

PATIENT
  Age: 80 Year
  Sex: Female
  Weight: 49.6 kg

DRUGS (15)
  1. ACTEMRA [Suspect]
     Active Substance: TOCILIZUMAB
     Route: 042
     Dates: start: 20121210
  2. SALAGEN [Concomitant]
     Active Substance: PILOCARPINE HYDROCHLORIDE
     Route: 065
  3. ADVAIR HFA [Concomitant]
     Active Substance: FLUTICASONE PROPIONATE\SALMETEROL XINAFOATE
     Route: 065
  4. PROLIA [Concomitant]
     Active Substance: DENOSUMAB
     Route: 065
  5. ACTEMRA [Suspect]
     Active Substance: TOCILIZUMAB
     Route: 042
     Dates: start: 20150527
  6. ACTEMRA [Suspect]
     Active Substance: TOCILIZUMAB
     Route: 042
     Dates: start: 20130408
  7. ACTEMRA [Suspect]
     Active Substance: TOCILIZUMAB
     Route: 042
     Dates: start: 20140409
  8. SPIRIVA [Concomitant]
     Active Substance: TIOTROPIUM BROMIDE MONOHYDRATE
     Route: 065
  9. ACTEMRA [Suspect]
     Active Substance: TOCILIZUMAB
     Indication: RHEUMATOID ARTHRITIS
     Route: 042
     Dates: start: 20110502
  10. ACTEMRA [Suspect]
     Active Substance: TOCILIZUMAB
     Route: 042
     Dates: start: 20120430
  11. CELEBREX [Concomitant]
     Active Substance: CELECOXIB
     Route: 065
  12. ACTEMRA [Suspect]
     Active Substance: TOCILIZUMAB
     Route: 042
     Dates: start: 20110929
  13. ASPIRIN. [Concomitant]
     Active Substance: ASPIRIN
     Route: 065
  14. VENTOLIN [Concomitant]
     Active Substance: ALBUTEROL SULFATE
     Route: 065
  15. PREDNISONE. [Concomitant]
     Active Substance: PREDNISONE
     Route: 065

REACTIONS (7)
  - Ill-defined disorder [Unknown]
  - Wound infection [Recovered/Resolved]
  - Wound [Not Recovered/Not Resolved]
  - Limb injury [Recovering/Resolving]
  - Vein disorder [Unknown]
  - Fall [Recovered/Resolved]
  - Localised infection [Unknown]

NARRATIVE: CASE EVENT DATE: 201301
